FAERS Safety Report 22166585 (Version 1)
Quarter: 2023Q2

REPORT INFORMATION
  Report Type: Spontaneous
  Country: US (occurrence: US)
  Receive Date: 20230403
  Receipt Date: 20230403
  Transmission Date: 20230722
  Serious: No
  Sender: FDA-Public Use
  Company Number: US-MAYNE PHARMA-2022MYN001063

PATIENT

DRUGS (1)
  1. LIOTHYRONINE [Suspect]
     Active Substance: LIOTHYRONINE
     Indication: Autoimmune thyroiditis
     Dosage: 7.5 MCG
     Route: 048

REACTIONS (1)
  - Fatigue [Unknown]
